FAERS Safety Report 8446093-6 (Version None)
Quarter: 2012Q2

REPORT INFORMATION
  Report Type: 
  Country: None (occurrence: None)
  Receive Date: 20120618
  Receipt Date: 20120614
  Transmission Date: 20120825
  Serious: No
  Sender: FDA-Public Use
  Company Number: US-BAYER-2012-059873

PATIENT

DRUGS (2)
  1. MOTRIN [Concomitant]
     Dosage: DAILY DOSE 4 DF
     Dates: start: 20120614
  2. ALEVE (CAPLET) [Suspect]
     Dosage: DAILY DOSE 3 DF
     Route: 048
     Dates: start: 20120614

REACTIONS (1)
  - OROPHARYNGEAL PAIN [None]
